FAERS Safety Report 15064596 (Version 1)
Quarter: 2018Q2

REPORT INFORMATION
  Report Type: Spontaneous
  Country: IL (occurrence: IL)
  Receive Date: 20180625
  Receipt Date: 20180625
  Transmission Date: 20180711
  Serious: Yes (Other)
  Sender: FDA-Public Use
  Company Number: IL-ROCHE-2143562

PATIENT
  Age: 69 Year
  Sex: Male
  Weight: 87 kg

DRUGS (5)
  1. NIVOLUMAB [Suspect]
     Active Substance: NIVOLUMAB
     Indication: NON-SMALL CELL LUNG CANCER
     Route: 065
     Dates: start: 201703
  2. PREDNISONE. [Suspect]
     Active Substance: PREDNISONE
     Indication: NEPHRITIS
     Route: 065
     Dates: start: 2017
  3. AVASTIN [Suspect]
     Active Substance: BEVACIZUMAB
     Indication: NON-SMALL CELL LUNG CANCER
     Route: 065
     Dates: start: 201609
  4. CARBOPLATIN. [Suspect]
     Active Substance: CARBOPLATIN
     Indication: NON-SMALL CELL LUNG CANCER
     Route: 065
     Dates: start: 201609
  5. TAXOL [Suspect]
     Active Substance: PACLITAXEL
     Indication: NON-SMALL CELL LUNG CANCER
     Route: 065
     Dates: start: 201609

REACTIONS (4)
  - Nephritis [Unknown]
  - Myopathy [Unknown]
  - Nasal disorder [Unknown]
  - Ill-defined disorder [Unknown]
